FAERS Safety Report 9497668 (Version 2)
Quarter: 2013Q4

REPORT INFORMATION
  Report Type: Spontaneous
  Country: US (occurrence: US)
  Receive Date: 20130904
  Receipt Date: 20131106
  Transmission Date: 20140711
  Serious: No
  Sender: FDA-Public Use
  Company Number: US-AMGEN-USASP2013061676

PATIENT
  Age: 55 Year
  Sex: Male

DRUGS (1)
  1. ENBREL [Suspect]
     Indication: ANKYLOSING SPONDYLITIS
     Dosage: 50 MG, QWK
     Route: 065
     Dates: start: 20130809

REACTIONS (4)
  - Thirst [Not Recovered/Not Resolved]
  - Dry mouth [Not Recovered/Not Resolved]
  - Throat irritation [Not Recovered/Not Resolved]
  - Insomnia [Not Recovered/Not Resolved]
